FAERS Safety Report 18093422 (Version 1)
Quarter: 2020Q3

REPORT INFORMATION
  Report Type: Spontaneous
  Country: US (occurrence: US)
  Receive Date: 20200730
  Receipt Date: 20200730
  Transmission Date: 20201103
  Serious: Yes (Other)
  Sender: FDA-Public Use
  Company Number: US-BAYER-2020-148847

PATIENT
  Age: 75 Year
  Sex: Female
  Weight: 109 kg

DRUGS (1)
  1. BAYER ASPIRIN [Suspect]
     Active Substance: ASPIRIN
     Indication: DYSMENORRHOEA
     Dosage: UNK
     Route: 048

REACTIONS (3)
  - Cardiac flutter [Recovered/Resolved]
  - Product use in unapproved indication [Unknown]
  - Abdominal discomfort [Unknown]
